FAERS Safety Report 20917333 (Version 3)
Quarter: 2022Q3

REPORT INFORMATION
  Report Type: Spontaneous
  Country: FR (occurrence: FR)
  Receive Date: 20220606
  Receipt Date: 20220702
  Transmission Date: 20221026
  Serious: Yes (Hospitalization)
  Sender: FDA-Public Use
  Company Number: FR-NOVARTISPH-NVSC2022FR124129

PATIENT
  Age: 67 Year
  Sex: Male
  Weight: 70.7 kg

DRUGS (49)
  1. RITUXIMAB [Suspect]
     Active Substance: RITUXIMAB
     Indication: Diffuse large B-cell lymphoma
     Dosage: 375 MG/M2, TIW
     Route: 041
     Dates: start: 20210826
  2. RITUXIMAB [Suspect]
     Active Substance: RITUXIMAB
     Dosage: 680 MG/M2, TIW (ON 26/AUG/2021, THE PATIENT RECEIVED THE MOST RECENT DOSE OF STUDY DRUG PRIOR TO SER
     Route: 041
     Dates: start: 20210826
  3. RITUXIMAB [Suspect]
     Active Substance: RITUXIMAB
     Route: 065
  4. PREDNISONE [Suspect]
     Active Substance: PREDNISONE
     Indication: Diffuse large B-cell lymphoma
     Dosage: 100 MG, QD (START DATE OF MOST RECENT DOSE OF STUDY DRUG PRIOR TO AE: 11/OCT/2021)
     Route: 048
     Dates: start: 20210826
  5. CYCLOPHOSPHAMIDE [Suspect]
     Active Substance: CYCLOPHOSPHAMIDE
     Indication: Diffuse large B-cell lymphoma
     Dosage: 750 MG/M2, TIW (ON 26/AUG/2021, THE PATIENT RECEIVED THE MOST RECENT DOSE OF STUDY DRUG PRIOR TO SER
     Route: 042
     Dates: start: 20210826
  6. DOXORUBICIN [Suspect]
     Active Substance: DOXORUBICIN
     Indication: Diffuse large B-cell lymphoma
     Dosage: 50 MG/M2, TIW (ON 26/AUG/2021, THE PATIENT RECEIVED THE MOST RECENT DOSE OF STUDY DRUG PRIOR TO SERI
     Route: 042
     Dates: start: 20210826
  7. VINCRISTINE [Suspect]
     Active Substance: VINCRISTINE
     Indication: Diffuse large B-cell lymphoma
     Dosage: 1.4 MG/M2, TIW (ON 26/AUG/2021, THE PATIENT RECEIVED THE MOST RECENT DOSE OF STUDY DRUG PRIOR TO SER
     Route: 042
     Dates: start: 20210826
  8. DEXAMETHASONE [Concomitant]
     Active Substance: DEXAMETHASONE
     Indication: Premedication
     Dosage: 20 MG
     Route: 042
     Dates: start: 20210923, end: 20210923
  9. LEUCOVORIN CALCIUM [Concomitant]
     Active Substance: LEUCOVORIN CALCIUM
     Indication: Product used for unknown indication
     Dosage: ONGOING YES
     Route: 065
     Dates: start: 20210826
  10. CALCIUM PHOSPHATE, DIBASIC, ANHYDROUS\MAGNESIUM GLYCEROPHOSPHATE\PHOSP [Concomitant]
     Active Substance: CALCIUM PHOSPHATE, DIBASIC, ANHYDROUS\MAGNESIUM GLYCEROPHOSPHATE\PHOSPHORIC ACID\SODIUM PHOSPHATE, D
     Indication: Product used for unknown indication
     Dosage: ONGOING NO
     Route: 065
     Dates: start: 20211214, end: 20211228
  11. VALACYCLOVIR HYDROCHLORIDE [Concomitant]
     Active Substance: VALACYCLOVIR HYDROCHLORIDE
     Indication: Product used for unknown indication
     Dosage: ONGOING YES
     Route: 065
     Dates: start: 20210826
  12. NICARDIPINE HYDROCHLORIDE [Concomitant]
     Active Substance: NICARDIPINE HYDROCHLORIDE
     Indication: Hypertension
     Dosage: UNK
     Route: 065
     Dates: start: 20210905
  13. PREGABALIN [Concomitant]
     Active Substance: PREGABALIN
     Indication: Product used for unknown indication
     Dosage: ONGOING NO
     Route: 065
     Dates: start: 20210115, end: 20210116
  14. FILGRASTIM [Concomitant]
     Active Substance: FILGRASTIM
     Indication: Product used for unknown indication
     Dosage: 48 U
     Route: 065
     Dates: start: 20210831, end: 20210906
  15. FILGRASTIM [Concomitant]
     Active Substance: FILGRASTIM
     Dosage: ONGOING NO
     Route: 065
     Dates: start: 20211012, end: 20211018
  16. FILGRASTIM [Concomitant]
     Active Substance: FILGRASTIM
     Dosage: ONGOING NO
     Route: 065
     Dates: start: 20211104, end: 20211109
  17. FILGRASTIM [Concomitant]
     Active Substance: FILGRASTIM
     Dosage: ONGOING NO
     Route: 065
     Dates: start: 20211124, end: 20211129
  18. FILGRASTIM [Concomitant]
     Active Substance: FILGRASTIM
     Dosage: ONGOING NO
     Route: 065
     Dates: start: 20211215, end: 20211220
  19. ACETAMINOPHEN [Concomitant]
     Active Substance: ACETAMINOPHEN
     Indication: Premedication
     Dosage: ONGOING NOGIVEN FOR PROPHYLAXIS YES
     Route: 048
     Dates: start: 20210826, end: 20210826
  20. ACETAMINOPHEN [Concomitant]
     Active Substance: ACETAMINOPHEN
     Dosage: ONGOING NOGIVEN FOR PROPHYLAXIS YES
     Route: 048
     Dates: start: 20210916, end: 20210916
  21. ACETAMINOPHEN [Concomitant]
     Active Substance: ACETAMINOPHEN
     Dosage: ONGOING NOGIVEN FOR PROPHYLAXIS YES
     Route: 048
     Dates: start: 20210923, end: 20210923
  22. ACETAMINOPHEN [Concomitant]
     Active Substance: ACETAMINOPHEN
     Dosage: ONGOING NOGIVEN FOR PROPHYLAXIS YES
     Route: 048
     Dates: start: 20210930, end: 20210930
  23. ACETAMINOPHEN [Concomitant]
     Active Substance: ACETAMINOPHEN
     Dosage: ONGOING NOGIVEN FOR PROPHYLAXIS YES
     Route: 048
     Dates: start: 20211007, end: 20211007
  24. ACETAMINOPHEN [Concomitant]
     Active Substance: ACETAMINOPHEN
     Dosage: ONGOING NOGIVEN FOR PROPHYLAXIS YES
     Route: 048
     Dates: start: 20211014, end: 20211014
  25. ACETAMINOPHEN [Concomitant]
     Active Substance: ACETAMINOPHEN
     Dosage: ONGOING NOGIVEN FOR PROPHYLAXIS YES
     Route: 048
     Dates: start: 20211028, end: 20211028
  26. ACETAMINOPHEN [Concomitant]
     Active Substance: ACETAMINOPHEN
     Dosage: ONGOING NO
     Route: 048
     Dates: start: 20211103, end: 20211103
  27. ACETAMINOPHEN [Concomitant]
     Active Substance: ACETAMINOPHEN
     Dosage: ONGOING NO
     Route: 048
     Dates: start: 20211116, end: 20211116
  28. ACETAMINOPHEN [Concomitant]
     Active Substance: ACETAMINOPHEN
     Dosage: ONGOING NOGIVEN FOR PROPHYLAXIS YES
     Route: 048
     Dates: start: 20211123, end: 20211123
  29. ACETAMINOPHEN [Concomitant]
     Active Substance: ACETAMINOPHEN
     Dosage: ONGOING NOGIVEN FOR PROPHYLAXIS YES
     Route: 048
     Dates: start: 20211207, end: 20211207
  30. ACETAMINOPHEN [Concomitant]
     Active Substance: ACETAMINOPHEN
     Dosage: ONGOING NO
     Route: 048
     Dates: start: 20211214, end: 20211214
  31. LORATADINE [Concomitant]
     Active Substance: LORATADINE
     Indication: Premedication
     Dosage: ONGOING NOGIVEN FOR PROPHYLAXIS YES
     Route: 048
     Dates: start: 20210826, end: 20210826
  32. LORATADINE [Concomitant]
     Active Substance: LORATADINE
     Dosage: ONGOING NO
     Route: 048
     Dates: start: 20210916, end: 20210916
  33. LORATADINE [Concomitant]
     Active Substance: LORATADINE
     Dosage: ONGOING NOGIVEN FOR PROPHYLAXIS YES
     Route: 048
     Dates: start: 20210923, end: 20210923
  34. LORATADINE [Concomitant]
     Active Substance: LORATADINE
     Dosage: ONGOING NOGIVEN FOR PROPHYLAXIS YES
     Route: 048
     Dates: start: 20210930, end: 20210930
  35. LORATADINE [Concomitant]
     Active Substance: LORATADINE
     Dosage: ONGOING NOGIVEN FOR PROPHYLAXIS YES
     Route: 048
     Dates: start: 20211007, end: 20211007
  36. LORATADINE [Concomitant]
     Active Substance: LORATADINE
     Dosage: ONGOING NOGIVEN FOR PROPHYLAXIS YES
     Route: 048
     Dates: start: 20211014, end: 20211014
  37. LORATADINE [Concomitant]
     Active Substance: LORATADINE
     Dosage: ONGOING NOGIVEN FOR PROPHYLAXIS YES
     Route: 048
     Dates: start: 20211028, end: 20211028
  38. LORATADINE [Concomitant]
     Active Substance: LORATADINE
     Dosage: ONGOING NOGIVEN FOR PROPHYLAXIS YES
     Route: 048
     Dates: start: 20211103, end: 20211103
  39. LORATADINE [Concomitant]
     Active Substance: LORATADINE
     Dosage: ONGOING NOGIVEN FOR PROPHYLAXIS YES
     Route: 048
     Dates: start: 20211116, end: 20211116
  40. LORATADINE [Concomitant]
     Active Substance: LORATADINE
     Dosage: ONGOING NO
     Route: 048
     Dates: start: 20211123, end: 20211123
  41. LORATADINE [Concomitant]
     Active Substance: LORATADINE
     Dosage: ONGOING NOGIVEN FOR PROPHYLAXIS YES
     Route: 048
     Dates: start: 20211207, end: 20211207
  42. LORATADINE [Concomitant]
     Active Substance: LORATADINE
     Dosage: 10 MG (ONGOING NO)
     Route: 048
     Dates: start: 20211214, end: 20211214
  43. ALLOPURINOL [Concomitant]
     Active Substance: ALLOPURINOL
     Indication: Product used for unknown indication
     Dosage: ONGOING NO
     Route: 065
     Dates: start: 20210823
  44. ALLOPURINOL [Concomitant]
     Active Substance: ALLOPURINOL
     Dosage: 300 MG
     Route: 065
     Dates: start: 20210826
  45. ALLOPURINOL [Concomitant]
     Active Substance: ALLOPURINOL
     Dosage: ONGOING NO
     Route: 065
     Dates: end: 20211007
  46. BACTRIM [Concomitant]
     Active Substance: SULFAMETHOXAZOLE\TRIMETHOPRIM
     Indication: Product used for unknown indication
     Dosage: 400 MG/80 MGONGOING YES
     Route: 065
     Dates: start: 20210826
  47. ESOMEPRAZOLE [Concomitant]
     Active Substance: ESOMEPRAZOLE
     Indication: Prophylaxis against gastrointestinal ulcer
     Dosage: ONGOING NO
     Route: 065
     Dates: start: 20210917, end: 20210920
  48. ESOMEPRAZOLE [Concomitant]
     Active Substance: ESOMEPRAZOLE
     Dosage: ONGOING NO
     Route: 065
     Dates: start: 20211008, end: 20211011
  49. FLUTICASONE [Concomitant]
     Active Substance: FLUTICASONE
     Indication: Product used for unknown indication
     Dosage: UNK (ONGOING YES)
     Route: 065

REACTIONS (6)
  - Diarrhoea [Recovered/Resolved]
  - Neutrophil count decreased [Recovering/Resolving]
  - Pyrexia [Recovering/Resolving]
  - Febrile neutropenia [Recovered/Resolved]
  - Febrile neutropenia [Recovered/Resolved]
  - Diarrhoea [Recovering/Resolving]

NARRATIVE: CASE EVENT DATE: 20210904
